FAERS Safety Report 4427961-9 (Version None)
Quarter: 2004Q3

REPORT INFORMATION
  Report Type: 
  Country: None (occurrence: None)
  Receive Date: 20040813
  Receipt Date: 20040804
  Transmission Date: 20050211
  Serious: Yes (Death, Hospitalization)
  Sender: FDA-Public Use
  Company Number: 163-20785-03120103

PATIENT
  Age: 37 Year
  Sex: Female
  Weight: 69.4003 kg

DRUGS (12)
  1. THALOMID [Suspect]
     Indication: COLORECTAL CANCER METASTATIC
     Dosage: 400; 100; 200; 300 MG, DAILY, ORAL
     Route: 048
     Dates: start: 20031008, end: 20031014
  2. THALOMID [Suspect]
     Indication: COLORECTAL CANCER METASTATIC
     Dosage: 400; 100; 200; 300 MG, DAILY, ORAL
     Route: 048
     Dates: start: 20031015, end: 20031021
  3. THALOMID [Suspect]
     Indication: COLORECTAL CANCER METASTATIC
     Dosage: 400; 100; 200; 300 MG, DAILY, ORAL
     Route: 048
     Dates: start: 20031022, end: 20031028
  4. THALOMID [Suspect]
     Indication: COLORECTAL CANCER METASTATIC
     Dosage: 400; 100; 200; 300 MG, DAILY, ORAL
     Route: 048
     Dates: end: 20040218
  5. THALOMID [Suspect]
     Indication: COLORECTAL CANCER METASTATIC
     Dosage: 400; 100 MG, DAILY ORAL
     Route: 048
     Dates: start: 20031029, end: 20031124
  6. THALOMID [Suspect]
     Indication: COLORECTAL CANCER METASTATIC
     Dosage: 400; 100 MG, DAILY ORAL
     Route: 048
     Dates: start: 20031212, end: 20031218
  7. THALOMID [Suspect]
     Dosage: DAILY, ORAL
     Route: 048
     Dates: start: 20031219, end: 20031222
  8. THALOMID [Suspect]
     Dosage: ORAL
     Route: 048
     Dates: start: 20040120
  9. THALOMID [Suspect]
     Dosage: 400 MG, DAILY, ORAL
     Route: 048
     Dates: end: 20040616
  10. XELODA [Suspect]
     Indication: COLORECTAL CANCER METASTATIC
     Dates: start: 20040120, end: 20040219
  11. XELODA [Suspect]
     Dosage: 2500 MG, 14  DAYS ON AND 7 DAYS OFF, ORAL
     Route: 048
     Dates: start: 20031008, end: 20031125
  12. XELODA (CAPECTABINE) [Suspect]
     Dosage: 1500MG/M2, DAYS 1-14, UNKNOWN
     Dates: end: 20040616

REACTIONS (30)
  - ACTIVATED PARTIAL THROMBOPLASTIN TIME PROLONGED [None]
  - ANAEMIA [None]
  - ASTHENIA [None]
  - BLOOD IRON ABNORMAL [None]
  - BRAIN ABSCESS [None]
  - COAGULOPATHY [None]
  - DEEP VEIN THROMBOSIS [None]
  - EPISTAXIS [None]
  - GASTRIC CANCER [None]
  - GLYCOPEPTIDE ANTIBIOTIC RESISTANT ENTEROCOCCAL INFECTION [None]
  - HAEMATOCRIT DECREASED [None]
  - HAEMOGLOBIN DECREASED [None]
  - HYPOXIA [None]
  - INTERNATIONAL NORMALISED RATIO INCREASED [None]
  - MALAISE [None]
  - MALIGNANT NEOPLASM PROGRESSION [None]
  - MARKEDLY REDUCED DIETARY INTAKE [None]
  - MELAENA [None]
  - METASTASES TO LIVER [None]
  - PLATELET COUNT DECREASED [None]
  - PNEUMONIA [None]
  - PROTHROMBIN TIME PROLONGED [None]
  - PULMONARY EMBOLISM [None]
  - RECTAL HAEMORRHAGE [None]
  - RESPIRATORY FAILURE [None]
  - SEPTIC SHOCK [None]
  - STENT OCCLUSION [None]
  - SURGICAL PROCEDURE REPEATED [None]
  - TACHYCARDIA [None]
  - WHITE BLOOD CELL COUNT DECREASED [None]
